FAERS Safety Report 14695882 (Version 1)
Quarter: 2018Q1

REPORT INFORMATION
  Report Type: Spontaneous
  Country: US (occurrence: US)
  Receive Date: 20180329
  Receipt Date: 20180329
  Transmission Date: 20180509
  Serious: Yes (Hospitalization)
  Sender: FDA-Public Use
  Company Number: US-BRISTOL-MYERS SQUIBB COMPANY-BMS-2018-025646

PATIENT
  Sex: Male
  Weight: 97.52 kg

DRUGS (1)
  1. COUMADIN [Suspect]
     Active Substance: WARFARIN SODIUM
     Indication: ATRIAL FIBRILLATION
     Dosage: 1 DF=5MG FOUR TIMES A WEEK AND 7.5MG THREE TIMES A WEEK, UNK
     Route: 065

REACTIONS (2)
  - Cardiac disorder [Unknown]
  - Coronary artery disease [Unknown]
